FAERS Safety Report 10911285 (Version 1)
Quarter: 2015Q1

REPORT INFORMATION
  Report Type: Report from Study
  Country: CA (occurrence: CA)
  Receive Date: 20150312
  Receipt Date: 20150312
  Transmission Date: 20150721
  Serious: Yes (Death)
  Sender: FDA-Public Use
  Company Number: CA-AMGEN-CANSL2015022740

PATIENT
  Age: 46 Year
  Sex: Female

DRUGS (2)
  1. XGEVA [Suspect]
     Active Substance: DENOSUMAB
     Indication: BREAST CANCER
     Dosage: 120MG/1.7ML, UNK
     Route: 065
     Dates: start: 20140707
  2. NEUPOGEN [Suspect]
     Active Substance: FILGRASTIM
     Indication: BREAST CANCER
     Dosage: 1ML/300MCG, UNK
     Route: 065
     Dates: start: 20140820

REACTIONS (1)
  - Death [Fatal]

NARRATIVE: CASE EVENT DATE: 20150211
